FAERS Safety Report 7950434-3 (Version None)
Quarter: 2011Q4

REPORT INFORMATION
  Report Type: 
  Country: None (occurrence: None)
  Receive Date: 20111130
  Receipt Date: 20111116
  Transmission Date: 20120403
  Serious: Yes (Hospitalization)
  Sender: FDA-Public Use
  Company Number: US-MYLANLABS-2011S1024168

PATIENT
  Age: 34 Year
  Sex: Female

DRUGS (2)
  1. LAMOTRIGINE [Suspect]
     Route: 048
  2. FLUOXETINE [Suspect]
     Route: 048

REACTIONS (6)
  - BLOOD PRESSURE DECREASED [None]
  - CONVULSION [None]
  - TACHYCARDIA [None]
  - INTENTIONAL DRUG MISUSE [None]
  - MATERNAL EXPOSURE DURING PREGNANCY [None]
  - ANTICONVULSANT DRUG LEVEL ABOVE THERAPEUTIC [None]
